FAERS Safety Report 5171064-5 (Version None)
Quarter: 2006Q4

REPORT INFORMATION
  Report Type: 
  Country: None (occurrence: None)
  Receive Date: 20061213
  Receipt Date: 20061208
  Transmission Date: 20070319
  Serious: Yes (Hospitalization)
  Sender: FDA-Public Use
  Company Number: US-GLAXOSMITHKLINE-A0630955A

PATIENT
  Age: 50 Year
  Sex: Female

DRUGS (11)
  1. COREG [Suspect]
     Indication: HYPERTENSION
     Dosage: 25MG TWICE PER DAY
     Route: 048
     Dates: start: 20020101
  2. CLONIDINE [Concomitant]
  3. HYZAAR [Concomitant]
  4. MINOXIDIL [Concomitant]
  5. PLAVIX [Concomitant]
  6. ZETIA [Concomitant]
  7. AMITRIPTYLINE HCL [Concomitant]
  8. METFORMIN [Concomitant]
  9. INSULIN [Concomitant]
  10. NOVOLOG [Concomitant]
  11. LANTUS [Concomitant]

REACTIONS (5)
  - ASTHENIA [None]
  - BLOOD PRESSURE DECREASED [None]
  - DARK CIRCLES UNDER EYES [None]
  - HYPERTENSION [None]
  - SWELLING FACE [None]
